FAERS Safety Report 9206578 (Version 1)
Quarter: 2013Q1

REPORT INFORMATION
  Report Type: Spontaneous
  Country: US (occurrence: None)
  Receive Date: 20120709
  Receipt Date: 20120709
  Transmission Date: 20140127
  Serious: Yes (Other)
  Sender: FDA-Public Use
  Company Number: PHHY2011US63016

PATIENT
  Age: 66 Year
  Sex: Male

DRUGS (1)
  1. GLEEVEC (IMATINIB) UNKNOWN [Suspect]
     Route: 048
     Dates: start: 20080609

REACTIONS (2)
  - Renal failure [None]
  - Hepatic failure [None]
